FAERS Safety Report 16927531 (Version 1)
Quarter: 2019Q4

REPORT INFORMATION
  Report Type: Spontaneous
  Country: US (occurrence: US)
  Receive Date: 20191016
  Receipt Date: 20191016
  Transmission Date: 20200122
  Serious: Yes (Other)
  Sender: FDA-Public Use
  Company Number: US-EX USA HOLDINGS-EXHL20192408

PATIENT
  Sex: Female

DRUGS (1)
  1. BENZNIDAZOLE. [Suspect]
     Active Substance: BENZNIDAZOLE
     Indication: PRODUCT USED FOR UNKNOWN INDICATION
     Dosage: UNKNOWN
     Route: 048
     Dates: start: 2011

REACTIONS (3)
  - Rash [Unknown]
  - Intentional product use issue [None]
  - Acute generalised exanthematous pustulosis [Unknown]

NARRATIVE: CASE EVENT DATE: 2011
